FAERS Safety Report 10474099 (Version 1)
Quarter: 2014Q3

REPORT INFORMATION
  Report Type: Spontaneous
  Country: US (occurrence: US)
  Receive Date: 20140924
  Receipt Date: 20140924
  Transmission Date: 20150326
  Serious: No
  Sender: FDA-Public Use
  Company Number: US-BAUSCH-SYM-2014-22236

PATIENT
  Age: 61 Year
  Sex: Female

DRUGS (1)
  1. EFUDEX [Suspect]
     Active Substance: FLUOROURACIL
     Indication: CERVIX CARCINOMA

REACTIONS (3)
  - Application site haemorrhage [Recovered/Resolved]
  - Drug ineffective [Recovered/Resolved]
  - Application site pain [Recovered/Resolved]
